FAERS Safety Report 5530425-2 (Version None)
Quarter: 2007Q4

REPORT INFORMATION
  Report Type: 
  Country: None (occurrence: None)
  Receive Date: 20071127
  Receipt Date: 20071127
  Transmission Date: 20080405
  Serious: No
  Sender: FDA-Public Use
  Company Number: None

PATIENT
  Age: 55 Year
  Sex: Female

DRUGS (2)
  1. MIRALAX [Suspect]
     Indication: DRUG USE FOR UNKNOWN INDICATION
     Dosage: PO
     Route: 048
     Dates: start: 20071009
  2. SILACE [Suspect]
     Indication: CONSTIPATION
     Dosage: PO
     Route: 048

REACTIONS (2)
  - BURNING SENSATION [None]
  - GLOSSODYNIA [None]
